FAERS Safety Report 9412110 (Version 2)
Quarter: 2013Q2

REPORT INFORMATION
  Report Type: Spontaneous
  Country: US (occurrence: None)
  Receive Date: 20130417
  Receipt Date: 20130517
  Transmission Date: 20140414
  Serious: Yes (Hospitalization)
  Sender: FDA-Public Use
  Company Number: 2013S1000813

PATIENT
  Age: 65 Year
  Sex: Female
  Weight: 72 kg

DRUGS (6)
  1. LIVALO [Suspect]
     Indication: BLOOD CHOLESTEROL INCREASED
     Route: 048
     Dates: start: 20130222, end: 20130315
  2. MULTIVITAMIN /05516001/ [Concomitant]
  3. PREVACID [Concomitant]
  4. METOPROLOL [Concomitant]
  5. LEVOTHYROXINE /00068002/ [Concomitant]
  6. SPIRONOLACTONE [Concomitant]

REACTIONS (3)
  - Myalgia [None]
  - Renal failure [None]
  - Muscular weakness [None]
